FAERS Safety Report 10488439 (Version 1)
Quarter: 2014Q4

REPORT INFORMATION
  Report Type: Spontaneous
  Country: US (occurrence: None)
  Receive Date: 20141001
  Receipt Date: 20141001
  Transmission Date: 20150528
  Serious: Yes (Hospitalization)
  Sender: FDA-Public Use
  Company Number: None

PATIENT
  Age: 48 Year
  Sex: Male
  Weight: 74 kg

DRUGS (17)
  1. HYDROCHLOROTHIAZIDE. [Concomitant]
     Active Substance: HYDROCHLOROTHIAZIDE
  2. NORCO [Concomitant]
     Active Substance: ACETAMINOPHEN\HYDROCODONE BITARTRATE
  3. SYMBICORT [Concomitant]
     Active Substance: BUDESONIDE\FORMOTEROL FUMARATE DIHYDRATE
  4. KEPPRA [Concomitant]
     Active Substance: LEVETIRACETAM
  5. ROBAXIN [Concomitant]
     Active Substance: METHOCARBAMOL
  6. PRILOSEC [Concomitant]
     Active Substance: OMEPRAZOLE MAGNESIUM
  7. REGLAN [Concomitant]
     Active Substance: METOCLOPRAMIDE HYDROCHLORIDE
  8. FOLIC ACID. [Concomitant]
     Active Substance: FOLIC ACID
  9. PRAVASTATIN [Concomitant]
     Active Substance: PRAVASTATIN\PRAVASTATIN SODIUM
  10. AMITIZA [Suspect]
     Active Substance: LUBIPROSTONE
     Route: 048
     Dates: start: 20140909, end: 20140926
  11. FORTEO [Concomitant]
     Active Substance: TERIPARATIDE
  12. SPIRIVA [Concomitant]
     Active Substance: TIOTROPIUM BROMIDE MONOHYDRATE
  13. LISINOPRIL. [Concomitant]
     Active Substance: LISINOPRIL
  14. NEURONTIN [Concomitant]
     Active Substance: GABAPENTIN
  15. ELAVIL [Concomitant]
     Active Substance: AMITRIPTYLINE HYDROCHLORIDE
  16. AMITIZA [Concomitant]
     Active Substance: LUBIPROSTONE
  17. DILTIAZEM [Concomitant]
     Active Substance: DILTIAZEM

REACTIONS (2)
  - Intestinal ischaemia [None]
  - Syncope [None]

NARRATIVE: CASE EVENT DATE: 20140926
